FAERS Safety Report 9806140 (Version 1)
Quarter: 2014Q1

REPORT INFORMATION
  Report Type: Spontaneous
  Country: US (occurrence: US)
  Receive Date: 20140109
  Receipt Date: 20140109
  Transmission Date: 20141002
  Serious: No
  Sender: FDA-Public Use
  Company Number: US-PFIZER INC-2014005027

PATIENT
  Sex: Male

DRUGS (1)
  1. PREMARIN [Suspect]
     Dosage: 5 MG, DAILY

REACTIONS (2)
  - Oestradiol abnormal [Unknown]
  - Intentional drug misuse [Unknown]
